FAERS Safety Report 9454761 (Version 1)
Quarter: 2013Q3

REPORT INFORMATION
  Report Type: Spontaneous
  Country: ZA (occurrence: ZA)
  Receive Date: 20130812
  Receipt Date: 20130812
  Transmission Date: 20140515
  Serious: Yes (Life-Threatening, Hospitalization, Other)
  Sender: FDA-Public Use
  Company Number: ZA-009507513-1308ZAF001764

PATIENT
  Age: 64 Year
  Sex: Male

DRUGS (7)
  1. ESMERON [Suspect]
     Indication: MUSCLE RELAXANT THERAPY
     Dosage: 50 MG ONCE
     Route: 042
  2. PROPOFOL [Concomitant]
     Indication: MUSCLE RELAXANT THERAPY
     Dosage: 160 MG
  3. SUFENTANIL [Concomitant]
     Indication: MUSCLE RELAXANT THERAPY
     Dosage: 20
  4. DORMICUM (MIDAZOLAM HYDROCHLORIDE) [Concomitant]
  5. PREXIM [Concomitant]
  6. AMLOC [Concomitant]
  7. LIDOCAINE [Concomitant]
     Indication: MUSCLE RELAXANT THERAPY

REACTIONS (5)
  - Respiratory arrest [Recovered/Resolved]
  - Anaphylactic reaction [Recovered/Resolved]
  - Rash [Recovered/Resolved]
  - Flushing [Recovered/Resolved]
  - Blood pressure decreased [Recovered/Resolved]
